FAERS Safety Report 16664299 (Version 1)
Quarter: 2019Q3

REPORT INFORMATION
  Report Type: Other
  Country: CN (occurrence: CN)
  Receive Date: 20190802
  Receipt Date: 20190802
  Transmission Date: 20191004
  Serious: Yes (Other)
  Sender: FDA-Public Use
  Company Number: CN-GE HEALTHCARE LIFE SCIENCES-2019CSU003920

PATIENT

DRUGS (2)
  1. OMNIPAQUE [Suspect]
     Active Substance: IOHEXOL
     Indication: ANGIOGRAM
     Dosage: 40 ML, SINGLE
     Route: 041
     Dates: start: 20190719, end: 20190719
  2. OMNIPAQUE [Suspect]
     Active Substance: IOHEXOL
     Indication: DIZZINESS

REACTIONS (3)
  - Headache [Recovering/Resolving]
  - Nausea [Recovering/Resolving]
  - Cranial nerve disorder [Recovering/Resolving]

NARRATIVE: CASE EVENT DATE: 20190719
